FAERS Safety Report 4737328-1 (Version None)
Quarter: 2005Q3

REPORT INFORMATION
  Report Type: 
  Country: None (occurrence: None)
  Receive Date: 20050808
  Receipt Date: 20050728
  Transmission Date: 20060218
  Serious: Yes (Hospitalization, Other)
  Sender: FDA-Public Use
  Company Number: PHBS2005IE10964

PATIENT
  Sex: Male

DRUGS (1)
  1. ZOMETA [Suspect]
     Route: 042

REACTIONS (4)
  - ASEPTIC NECROSIS BONE [None]
  - DENTAL OPERATION [None]
  - POST PROCEDURAL COMPLICATION [None]
  - TRANSPLANT [None]
